FAERS Safety Report 20035389 (Version 1)
Quarter: 2021Q4

REPORT INFORMATION
  Report Type: Spontaneous
  Country: US (occurrence: US)
  Receive Date: 20211104
  Receipt Date: 20211104
  Transmission Date: 20220304
  Serious: Yes (Other)
  Sender: FDA-Public Use
  Company Number: US-BRISTOL-MYERS SQUIBB COMPANY-BMS-2016-063047

PATIENT
  Sex: Female

DRUGS (4)
  1. ABILIFY MAINTENA [Suspect]
     Active Substance: ARIPIPRAZOLE
     Indication: Schizophrenia
     Dosage: 400 MG, QM
     Route: 030
     Dates: start: 201604, end: 201607
  2. ABILIFY [Suspect]
     Active Substance: ARIPIPRAZOLE
     Indication: Product used for unknown indication
     Dosage: UNK
     Route: 065
  3. ABILIFY MAINTENA [Suspect]
     Active Substance: ARIPIPRAZOLE
     Indication: Schizophrenia
     Dosage: 400 MG, QMO
     Route: 030
     Dates: start: 201604, end: 201607
  4. ARISTADA [Suspect]
     Active Substance: ARIPIPRAZOLE LAUROXIL
     Indication: Product used for unknown indication
     Dosage: 420 MG, UNK
     Route: 065
     Dates: start: 201607

REACTIONS (9)
  - Schizophrenia [Unknown]
  - Condition aggravated [Unknown]
  - Conversion disorder [Unknown]
  - Crying [Unknown]
  - Emotional disorder [Unknown]
  - Menstrual disorder [Unknown]
  - Product prescribing error [Unknown]
  - Therapeutic response decreased [Unknown]
  - Treatment noncompliance [Unknown]
